FAERS Safety Report 21754793 (Version 1)
Quarter: 2022Q4

REPORT INFORMATION
  Report Type: Spontaneous
  Country: IT (occurrence: IT)
  Receive Date: 20221220
  Receipt Date: 20221220
  Transmission Date: 20230113
  Serious: Yes (Hospitalization)
  Sender: FDA-Public Use
  Company Number: None

PATIENT
  Age: 61 Year
  Sex: Male

DRUGS (2)
  1. IBUPROFEN [Interacting]
     Active Substance: IBUPROFEN
     Indication: COVID-19
     Dosage: 1200 MILLIGRAM, QD
     Route: 048
     Dates: start: 20220712, end: 20220714
  2. ASPIRIN [Interacting]
     Active Substance: ASPIRIN
     Indication: Thrombosis prophylaxis
     Dosage: 100 MILLIGRAM
     Route: 048
     Dates: start: 20170101

REACTIONS (4)
  - Drug interaction [Unknown]
  - Melaena [Recovering/Resolving]
  - Abdominal pain upper [Recovering/Resolving]
  - Gastritis erosive [Unknown]

NARRATIVE: CASE EVENT DATE: 20220714
